FAERS Safety Report 8505981-2 (Version None)
Quarter: 2012Q3

REPORT INFORMATION
  Report Type: 
  Country: None (occurrence: None)
  Receive Date: 20120712
  Receipt Date: 20120522
  Transmission Date: 20120928
  Serious: Yes (Hospitalization)
  Sender: FDA-Public Use
  Company Number: FR-GLAXOSMITHKLINE-B0804839A

PATIENT
  Age: 53 Year
  Sex: Female

DRUGS (2)
  1. VALACYCLOVIR HYDROCHLORIDE [Suspect]
     Indication: GENITAL HERPES
     Dosage: 500MG TWICE PER DAY
     Route: 048
     Dates: start: 20120521, end: 20120522
  2. FURADANTIN [Suspect]
     Indication: CYSTITIS
     Dosage: 50MG UNKNOWN
     Route: 048
     Dates: start: 20120515, end: 20120522

REACTIONS (5)
  - VOMITING [None]
  - DYSPNOEA [None]
  - THROAT IRRITATION [None]
  - DIARRHOEA [None]
  - RASH ERYTHEMATOUS [None]
